FAERS Safety Report 7978247-7 (Version None)
Quarter: 2011Q4

REPORT INFORMATION
  Report Type: 
  Country: None (occurrence: None)
  Receive Date: 20111206
  Receipt Date: 20111028
  Transmission Date: 20120403
  Serious: Yes (Life-Threatening)
  Sender: FDA-Public Use
  Company Number: 2011SP050935

PATIENT
  Age: 49 Year
  Sex: Male
  Weight: 74 kg

DRUGS (16)
  1. SUGAMMADEX SODIUM [Suspect]
     Indication: NEUROMUSCULAR BLOCKADE REVERSAL
     Dosage: 200 MG;IV
     Route: 042
     Dates: start: 20111025, end: 20111025
  2. DIPRIVAN [Suspect]
     Indication: GENERAL ANAESTHESIA
     Dosage: 100 MG;IV
     Route: 042
     Dates: start: 20111025, end: 20111025
  3. SELBEX [Concomitant]
  4. LYRICA [Concomitant]
  5. PURSENNID [Concomitant]
  6. SAXIZON (HYDROCORTISONE SODIUM SUCCINATE /00028602/) [Suspect]
     Indication: PROPHYLAXIS
     Dosage: 300 MG;IV
     Route: 042
     Dates: start: 20111025, end: 20111025
  7. NEUROTROPIN [Concomitant]
  8. LOXONIN [Concomitant]
  9. EPHEDRINE SUL CAP [Suspect]
     Indication: PROCEDURAL HYPOTENSION
     Dosage: 4 MG;IV
     Route: 042
     Dates: start: 20111025, end: 20111025
  10. OLMESARTAN MEDOXOMIL [Concomitant]
  11. ROCURONIUM BROMIDE [Suspect]
     Indication: NEUROMUSCULAR BLOCKING THERAPY
     Dosage: 200 MG;IV
     Route: 042
     Dates: start: 20111025, end: 20111025
  12. FENTANYL [Suspect]
     Indication: GENERAL ANAESTHESIA
     Dosage: 0.1 MG;IV
     Route: 042
     Dates: start: 20111025, end: 20111025
  13. ULTIVA [Suspect]
     Indication: GENERAL ANAESTHESIA
     Dosage: 0.8 MG;INDRP
     Route: 041
     Dates: start: 20111025, end: 20111025
  14. CEFAZOLIN SODIUM [Suspect]
     Indication: PRODUCT USED FOR UNKNOWN INDICATION
     Dosage: 1 GM;INDRP
     Route: 041
     Dates: start: 20111025, end: 20111025
  15. SEVOFLURANE [Suspect]
     Indication: ANAESTHESIA
     Dosage: 30 ML;INH
     Route: 055
     Dates: start: 20111025, end: 20111025
  16. CRESTOR [Concomitant]

REACTIONS (6)
  - LOSS OF CONSCIOUSNESS [None]
  - ANAPHYLACTIC REACTION [None]
  - BLOOD PRESSURE DECREASED [None]
  - HEART RATE DECREASED [None]
  - ELECTROCARDIOGRAM ST SEGMENT ELEVATION [None]
  - TACHYCARDIA [None]
